FAERS Safety Report 8829302 (Version 1)
Quarter: 2012Q4

REPORT INFORMATION
  Report Type: Spontaneous
  Country: DK (occurrence: None)
  Receive Date: 20121004
  Receipt Date: 20121004
  Transmission Date: 20130627
  Serious: Yes (Other)
  Sender: FDA-Public Use
  Company Number: 2012MA011826

PATIENT
  Age: 73 Year
  Sex: Female

DRUGS (4)
  1. LOSARTAN POTASSIUM [Suspect]
     Route: 048
     Dates: start: 20120612, end: 20120625
  2. INDAPAMIDE [Concomitant]
  3. SIMVASTATIN [Concomitant]
  4. NAPROXEN [Concomitant]

REACTIONS (2)
  - Adverse drug reaction [None]
  - Respiratory disorder [None]
